FAERS Safety Report 16064620 (Version 1)
Quarter: 2019Q1

REPORT INFORMATION
  Report Type: Spontaneous
  Country: GB (occurrence: GB)
  Receive Date: 20190312
  Receipt Date: 20190312
  Transmission Date: 20190418
  Serious: Yes (Other)
  Sender: FDA-Public Use
  Company Number: GB-WHANIN PHARM. CO., LTD.-2019M1022836

PATIENT
  Age: 4 Decade
  Sex: Male

DRUGS (1)
  1. CLOZAPINE. [Suspect]
     Active Substance: CLOZAPINE
     Indication: SCHIZOPHRENIA
     Dosage: UNK
     Route: 065

REACTIONS (6)
  - Heart rate increased [Recovered/Resolved]
  - Cardiac disorder [Recovered/Resolved]
  - Body temperature increased [Recovered/Resolved]
  - Obsessive-compulsive symptom [Recovering/Resolving]
  - Syncope [Recovered/Resolved]
  - Autonomic nervous system imbalance [Recovered/Resolved]
